FAERS Safety Report 24961403 (Version 1)
Quarter: 2025Q1

REPORT INFORMATION
  Report Type: Spontaneous
  Country: US (occurrence: US)
  Receive Date: 20250212
  Receipt Date: 20250212
  Transmission Date: 20250408
  Serious: No
  Sender: BAUSCH AND LOMB
  Company Number: US-BAUSCHBL-2025BNL002044

PATIENT
  Age: 86 Year
  Sex: Female
  Weight: 61 kg

DRUGS (1)
  1. XIIDRA [Suspect]
     Active Substance: LIFITEGRAST
     Indication: Dry eye
     Route: 047
     Dates: start: 20250201, end: 20250203

REACTIONS (9)
  - Dizziness [Not Recovered/Not Resolved]
  - Dry mouth [Unknown]
  - Chest discomfort [Unknown]
  - Burning sensation [Unknown]
  - Dysphagia [Unknown]
  - Feeling abnormal [Unknown]
  - Throat clearing [Unknown]
  - Intentional dose omission [Unknown]
  - Product label issue [Unknown]

NARRATIVE: CASE EVENT DATE: 20250201
